FAERS Safety Report 8803299 (Version 1)
Quarter: 2012Q4

REPORT INFORMATION
  Report Type: 
  Country: US (occurrence: US)
  Receive Date: 20120924
  Receipt Date: 20120924
  Transmission Date: 20130627
  Serious: No
  Sender: FDA-Public Use
  Company Number: US-009507513-1209USA008192

PATIENT
  Sex: Male

DRUGS (3)
  1. HYZAAR [Suspect]
     Dosage: 50 mg, UNK
     Route: 048
  2. METFORMIN [Concomitant]
  3. ADVIL [Concomitant]

REACTIONS (5)
  - Regurgitation [Unknown]
  - Hyperhidrosis [Unknown]
  - Vision blurred [Unknown]
  - Dizziness [Unknown]
  - Hypotension [Unknown]
